FAERS Safety Report 17310178 (Version 1)
Quarter: 2020Q1

REPORT INFORMATION
  Report Type: Other
  Country: US (occurrence: US)
  Receive Date: 20200123
  Receipt Date: 20200123
  Transmission Date: 20200409
  Serious: Yes (Death)
  Sender: FDA-Public Use
  Company Number: US-INTELLIPHARMACEUTICS CORP.-2079348

PATIENT
  Age: 61 Year
  Sex: Female

DRUGS (5)
  1. ALPRAZOLAM. [Suspect]
     Active Substance: ALPRAZOLAM
     Route: 048
  2. QUETIAPINE FUMARATE. [Suspect]
     Active Substance: QUETIAPINE FUMARATE
     Indication: PRODUCT USED FOR UNKNOWN INDICATION
     Route: 048
  3. LITHIUM. [Suspect]
     Active Substance: LITHIUM
     Route: 048
  4. LAMOTRIGINE. [Suspect]
     Active Substance: LAMOTRIGINE
     Route: 048
  5. HYDROCODONE BITARTRATE AND ACETAMINOPHEN [Suspect]
     Active Substance: ACETAMINOPHEN\HYDROCODONE BITARTRATE
     Route: 048

REACTIONS (1)
  - Completed suicide [Fatal]
